FAERS Safety Report 6043391-0 (Version None)
Quarter: 2009Q1

REPORT INFORMATION
  Report Type: 
  Country: None (occurrence: None)
  Receive Date: 20090115
  Receipt Date: 20090101
  Transmission Date: 20090719
  Serious: Yes (Life-Threatening)
  Sender: FDA-Public Use
  Company Number: CIP09000010

PATIENT

DRUGS (3)
  1. DIDRONEL [Suspect]
     Dosage: ORAL
     Route: 048
  2. IBANDRONATE MONOSO (IBANDRONATE SODIUM) [Suspect]
     Dosage: 150 MG ONE DOSAGE
     Route: 048
  3. UNKNOWN [Suspect]

REACTIONS (1)
  - OESOPHAGEAL CARCINOMA [None]
